FAERS Safety Report 6973331-9 (Version None)
Quarter: 2010Q3

REPORT INFORMATION
  Report Type: 
  Country: None (occurrence: None)
  Receive Date: 20100907
  Receipt Date: 20100824
  Transmission Date: 20110219
  Serious: Yes (Death)
  Sender: FDA-Public Use
  Company Number: HCDA20100004

PATIENT
  Age: 48 Year
  Sex: Female

DRUGS (13)
  1. HYDRCODONE BITARTRATE/ACETAMINOPHEN [Suspect]
     Indication: PRODUCT USED FOR UNKNOWN INDICATION
  2. FENTANYL-100 [Suspect]
     Indication: PRODUCT USED FOR UNKNOWN INDICATION
     Dosage: 1 EVERY 72 HOURS
  3. FLUOXETINE [Suspect]
     Indication: PRODUCT USED FOR UNKNOWN INDICATION
  4. NORFLUOXETINE [Suspect]
     Indication: PRODUCT USED FOR UNKNOWN INDICATION
  5. DULOXETINE HYDROCHLORIDE [Suspect]
     Indication: PRODUCT USED FOR UNKNOWN INDICATION
  6. THEOPHYLLINE [Suspect]
     Indication: PRODUCT USED FOR UNKNOWN INDICATION
  7. MECLIZINE [Suspect]
     Indication: PRODUCT USED FOR UNKNOWN INDICATION
  8. SALSALATE (SALSALATE) (SALSALATE) [Concomitant]
  9. GABAPENTIN (GABAPENTIN) (GABAPENTIN) [Concomitant]
  10. LORAZEPAM [Concomitant]
  11. PANTOPRAZOLE SODIUM [Concomitant]
  12. LISINOPRIL [Concomitant]
  13. TEMAZEPAM [Suspect]

REACTIONS (6)
  - ACCIDENTAL DEATH [None]
  - DIZZINESS [None]
  - DRUG TOXICITY [None]
  - DYSARTHRIA [None]
  - PAIN IN EXTREMITY [None]
  - UNRESPONSIVE TO STIMULI [None]
